FAERS Safety Report 4323550-5 (Version None)
Quarter: 2004Q1

REPORT INFORMATION
  Report Type: 
  Country: None (occurrence: None)
  Receive Date: 20040325
  Receipt Date: 20021014
  Transmission Date: 20041129
  Serious: Yes (Disabling)
  Sender: FDA-Public Use
  Company Number: WAES 0210USA01489

PATIENT
  Age: 57 Year
  Sex: Female
  Weight: 82 kg

DRUGS (4)
  1. GLIMEPIRIDE [Concomitant]
  2. METFORMIN [Concomitant]
  3. VIOXX [Suspect]
     Indication: ARTHRALGIA
     Route: 048
     Dates: start: 20000601, end: 20001121
  4. VIOXX [Suspect]
     Indication: PAIN IN EXTREMITY
     Route: 048
     Dates: start: 20000601, end: 20001121

REACTIONS (3)
  - CARDIAC ARREST [None]
  - CONVULSION [None]
  - EMOTIONAL DISTRESS [None]
